FAERS Safety Report 8300770-6 (Version None)
Quarter: 2012Q2

REPORT INFORMATION
  Report Type: 
  Country: None (occurrence: None)
  Receive Date: 20120417
  Receipt Date: 20120404
  Transmission Date: 20120825
  Serious: Yes (Hospitalization, Disabling, Other)
  Sender: FDA-Public Use
  Company Number: 2009AL000590

PATIENT
  Age: 49 Year
  Sex: Female
  Weight: 108.4097 kg

DRUGS (91)
  1. LEXAPRO [Concomitant]
  2. TAMBOCOR [Concomitant]
  3. TAZTIA XT [Concomitant]
  4. ASPIRIN [Concomitant]
  5. VICODIN [Concomitant]
  6. PROMETHAZINE [Concomitant]
  7. MEPERIDINE/PROMETH CAP [Concomitant]
  8. ANATUSS [Concomitant]
  9. PROVERA [Concomitant]
  10. CEFTIN [Concomitant]
  11. LASIX [Concomitant]
  12. LOTENSIN [Concomitant]
  13. TORSEMIDE [Concomitant]
  14. UROBLUE [Concomitant]
  15. KLOR-CON [Concomitant]
  16. BENADRYL [Concomitant]
  17. METHOCARBAMOL [Concomitant]
  18. MEDROXYOR [Concomitant]
  19. HYTRIN [Concomitant]
  20. DIGOXIN [Suspect]
     Indication: PRODUCT USED FOR UNKNOWN INDICATION
     Dosage: 0.25 MG;QD;PO
     Route: 048
     Dates: start: 20011126, end: 20090803
  21. MACROBID [Concomitant]
  22. REGLAN [Concomitant]
  23. TOPROL-XL [Concomitant]
  24. HEPARIN [Concomitant]
  25. INSULIN [Concomitant]
  26. CIPROFLOXACIN [Concomitant]
  27. SPIRONOLACTONE [Concomitant]
  28. LOTENSIN [Concomitant]
  29. AMITRIPTYLINE HCL [Concomitant]
  30. HYDROCHLOROTHIAZIDE [Concomitant]
  31. PLAVIX [Concomitant]
  32. PEPCID [Concomitant]
  33. DILTIA [Concomitant]
  34. DEMADEX [Concomitant]
  35. MAXZIDE [Concomitant]
  36. RESTORIL [Concomitant]
  37. ALPRAZOLAM [Concomitant]
  38. DRIXORAL [Concomitant]
  39. HUMALOG [Concomitant]
  40. TYLENOL (CAPLET) [Concomitant]
  41. AMARYL [Concomitant]
  42. CLARITIN [Concomitant]
  43. SULAR [Concomitant]
  44. TILACOR [Concomitant]
  45. ANTACIDS [Concomitant]
  46. JANUVIA [Concomitant]
  47. NOVOLOG [Concomitant]
  48. OXYCODONE HCL AND ACETAMINOPHEN [Concomitant]
  49. FAMOTIDINE [Concomitant]
  50. NITROFUR [Concomitant]
  51. MOTRIN [Concomitant]
  52. KEFLEX [Concomitant]
  53. DILACOR XR [Concomitant]
  54. ZITHROMAX [Concomitant]
  55. ALPRAZOLAM [Concomitant]
  56. LAC-HYDRIN [Concomitant]
  57. BAZA [Concomitant]
  58. LEVAQUIN [Concomitant]
  59. BENAZEPRIL HYDROCHLORIDE [Concomitant]
  60. CARDIZEM [Concomitant]
  61. FUROSEMIDE [Concomitant]
  62. BYETTA [Concomitant]
  63. PHENAZOPYRIDINE HCL TAB [Concomitant]
  64. CARDIZEM [Concomitant]
  65. DESIPRAMINE HCL [Concomitant]
  66. ALDACTONE [Concomitant]
  67. TRIAMTERENE AND HYDROCHLOROTHIAZIDE [Concomitant]
  68. POTASSIUM CHLORIDE [Concomitant]
  69. NITROGLYCERIN [Concomitant]
  70. NEUTRA-PHOS [Concomitant]
  71. WARFARIN SODIUM [Concomitant]
  72. TIAZAC [Concomitant]
  73. FIORINAL [Concomitant]
  74. ALDOMET [Concomitant]
  75. CEFZIL [Concomitant]
  76. ACIPHEX [Concomitant]
  77. HEPARIN [Concomitant]
  78. XANAX [Concomitant]
  79. LANTUS [Concomitant]
  80. METOPROLOL TARTRATE [Concomitant]
  81. COUMADIN [Concomitant]
  82. MYLANTA [Concomitant]
  83. PHENERGAN HCL [Concomitant]
  84. SOLU-MEDROL [Concomitant]
  85. MEDROL [Concomitant]
  86. PROPULSID [Concomitant]
  87. POTASSIUM CHLORIDE [Concomitant]
  88. SONATA [Concomitant]
  89. ZELNORM [Concomitant]
  90. CELEXA [Concomitant]
  91. NOVOLIN 70/30 [Concomitant]

REACTIONS (74)
  - LOSS OF EMPLOYMENT [None]
  - ACTIVITIES OF DAILY LIVING IMPAIRED [None]
  - OEDEMA PERIPHERAL [None]
  - VENOUS INSUFFICIENCY [None]
  - AGITATION [None]
  - ATELECTASIS [None]
  - MENTAL DISORDER [None]
  - UNEVALUABLE EVENT [None]
  - ANXIETY [None]
  - DYSPNOEA [None]
  - PANIC ATTACK [None]
  - EAR PAIN [None]
  - SLEEP APNOEA SYNDROME [None]
  - PICKWICKIAN SYNDROME [None]
  - DEPRESSION [None]
  - CHRONIC OBSTRUCTIVE PULMONARY DISEASE [None]
  - IRRITABLE BOWEL SYNDROME [None]
  - OVERWEIGHT [None]
  - LUNG CONSOLIDATION [None]
  - SOCIAL AVOIDANT BEHAVIOUR [None]
  - CHEST PAIN [None]
  - HYPOGLYCAEMIA [None]
  - RESTLESSNESS [None]
  - OEDEMA GENITAL [None]
  - SOMNOLENCE [None]
  - UTERINE LEIOMYOMA [None]
  - PULMONARY HYPERTENSION [None]
  - FAMILY STRESS [None]
  - EMOTIONAL DISTRESS [None]
  - ANHEDONIA [None]
  - MUSCULAR WEAKNESS [None]
  - CHEST DISCOMFORT [None]
  - BRADYCARDIA [None]
  - POSTMENOPAUSAL HAEMORRHAGE [None]
  - ECONOMIC PROBLEM [None]
  - CARDIAC FAILURE CONGESTIVE [None]
  - CRYING [None]
  - SKIN ULCER [None]
  - TYPE 2 DIABETES MELLITUS [None]
  - MYOCARDIAL INFARCTION [None]
  - WHEELCHAIR USER [None]
  - BLOOD PRESSURE DECREASED [None]
  - SINUS BRADYCARDIA [None]
  - PALPITATIONS [None]
  - UPPER-AIRWAY COUGH SYNDROME [None]
  - BACK PAIN [None]
  - FLUID OVERLOAD [None]
  - ATRIAL FIBRILLATION [None]
  - HEART RATE IRREGULAR [None]
  - NASOPHARYNGITIS [None]
  - RALES [None]
  - SINUSITIS [None]
  - EAR CONGESTION [None]
  - STASIS DERMATITIS [None]
  - OXYGEN SATURATION DECREASED [None]
  - CARDIOMEGALY [None]
  - PAIN [None]
  - FACIAL PAIN [None]
  - PAIN IN EXTREMITY [None]
  - GASTROOESOPHAGEAL REFLUX DISEASE [None]
  - ABDOMINAL PAIN UPPER [None]
  - DYSPEPSIA [None]
  - COUGH [None]
  - BUNDLE BRANCH BLOCK LEFT [None]
  - MULTIPLE INJURIES [None]
  - FLATULENCE [None]
  - HYPERHIDROSIS [None]
  - BREATH SOUNDS ABNORMAL [None]
  - FATIGUE [None]
  - CYANOSIS [None]
  - GENERALISED OEDEMA [None]
  - CARDIAC FLUTTER [None]
  - SINUS ARRHYTHMIA [None]
  - RESPIRATORY ACIDOSIS [None]
